FAERS Safety Report 9297650 (Version 4)
Quarter: 2016Q4

REPORT INFORMATION
  Report Type: Spontaneous
  Country: US (occurrence: US)
  Receive Date: 20130520
  Receipt Date: 20161104
  Transmission Date: 20170207
  Serious: Yes (Hospitalization)
  Sender: FDA-Public Use
  Company Number: US-PFIZER INC-2013151207

PATIENT
  Age: 46 Year
  Sex: Male
  Weight: 127 kg

DRUGS (1)
  1. RAPAMUNE [Suspect]
     Active Substance: SIROLIMUS
     Indication: RENAL TRANSPLANT
     Dosage: 200 MG, 1X/DAY

REACTIONS (2)
  - Malaise [Unknown]
  - Thrombosis [Unknown]
